FAERS Safety Report 4699163-2 (Version None)
Quarter: 2005Q2

REPORT INFORMATION
  Report Type: 
  Country: None (occurrence: None)
  Receive Date: 20050623
  Receipt Date: 20050623
  Transmission Date: 20051028
  Serious: Yes (Other)
  Sender: FDA-Public Use
  Company Number: None

PATIENT
  Age: 50 Year
  Sex: Female
  Weight: 63.5 kg

DRUGS (1)
  1. LITHIUM CARBONATE [Suspect]
     Indication: BIPOLAR I DISORDER
     Dosage: 100ML IN AM AND QHS
     Dates: start: 20050620

REACTIONS (3)
  - DRUG DISPENSING ERROR [None]
  - MEDICATION ERROR [None]
  - OVERDOSE [None]
